FAERS Safety Report 7709909-4 (Version None)
Quarter: 2011Q3

REPORT INFORMATION
  Report Type: 
  Country: None (occurrence: None)
  Receive Date: 20110825
  Receipt Date: 20110824
  Transmission Date: 20111222
  Serious: Yes (Other)
  Sender: FDA-Public Use
  Company Number: IT-PFIZER INC-2011184646

PATIENT
  Age: 79 Year
  Sex: Female

DRUGS (7)
  1. DANZEN [Concomitant]
     Indication: TOOTH DISORDER
     Dosage: UNK
     Dates: start: 20110528, end: 20110528
  2. CARDURA [Concomitant]
  3. NORVASC [Concomitant]
  4. TICLOPIDINE [Concomitant]
  5. LINCOCIN [Suspect]
     Dosage: 1.5 G, 1X/DAY
     Route: 048
     Dates: start: 20110602, end: 20110605
  6. CANDESARTAN CILEXETIL [Concomitant]
  7. CEFIXORAL [Concomitant]
     Indication: TOOTH DISORDER
     Dosage: UNK
     Dates: start: 20110516, end: 20110516

REACTIONS (2)
  - PHARYNGEAL OEDEMA [None]
  - TONGUE OEDEMA [None]
